FAERS Safety Report 6516839-2 (Version None)
Quarter: 2009Q4

REPORT INFORMATION
  Report Type: 
  Country: None (occurrence: None)
  Receive Date: 20091223
  Receipt Date: 20091218
  Transmission Date: 20100525
  Serious: Yes (Hospitalization)
  Sender: FDA-Public Use
  Company Number: PHHO2009DE14294

PATIENT
  Sex: Female
  Weight: 55 kg

DRUGS (5)
  1. AFINITOR [Suspect]
     Indication: BREAST CANCER
     Dosage: 5 MG / DAY
     Route: 048
     Dates: start: 20090709
  2. PACLITAXEL [Suspect]
     Indication: BREAST CANCER
     Dosage: 129 MG
     Route: 042
     Dates: start: 20090723
  3. EPIRUBICIN [Concomitant]
     Indication: BREAST CANCER
     Dosage: 144 MG
     Route: 042
     Dates: start: 20090416
  4. CYCLOPHOSPHAMIDE [Concomitant]
     Indication: BREAST CANCER
     Dosage: 10960 MG
     Route: 042
     Dates: start: 20090416
  5. BEVACIZUMAB [Concomitant]
     Indication: BREAST CANCER
     Dosage: 840 MG
     Route: 042
     Dates: start: 20090416

REACTIONS (2)
  - PYREXIA [None]
  - RESPIRATORY TRACT INFECTION [None]
